FAERS Safety Report 13676656 (Version 3)
Quarter: 2017Q4

REPORT INFORMATION
  Report Type: Spontaneous
  Country: US (occurrence: US)
  Receive Date: 20170622
  Receipt Date: 20171114
  Transmission Date: 20180320
  Serious: No
  Sender: FDA-Public Use
  Company Number: US-PFIZER INC-2017266970

PATIENT
  Age: 66 Year
  Sex: Female
  Weight: 78.2 kg

DRUGS (3)
  1. EFFEXOR [Concomitant]
     Active Substance: VENLAFAXINE HYDROCHLORIDE
     Indication: DEPRESSION
     Dosage: 75 MG, 1X/DAY
     Dates: start: 2011
  2. IBRANCE [Suspect]
     Active Substance: PALBOCICLIB
     Indication: LUNG NEOPLASM MALIGNANT
     Dosage: 100 MG, DAILY (WITH FOOD)
     Route: 048
     Dates: start: 20170525, end: 2017
  3. ANASTROZOLE. [Concomitant]
     Active Substance: ANASTROZOLE
     Indication: NEOPLASM MALIGNANT
     Dosage: 1 MG, DAILY
     Dates: start: 2014

REACTIONS (7)
  - Skin disorder [Unknown]
  - Malaise [Unknown]
  - Tinea cruris [Unknown]
  - Rash pruritic [Unknown]
  - Skin haemorrhage [Unknown]
  - Rash [Unknown]
  - Blood count abnormal [Unknown]

NARRATIVE: CASE EVENT DATE: 2017
